FAERS Safety Report 16493741 (Version 1)
Quarter: 2019Q2

REPORT INFORMATION
  Report Type: Spontaneous
  Country: GB (occurrence: GB)
  Receive Date: 20190628
  Receipt Date: 20190628
  Transmission Date: 20190711
  Serious: Yes (Hospitalization, Other)
  Sender: FDA-Public Use
  Company Number: GB-ELI_LILLY_AND_COMPANY-GB201906012342

PATIENT
  Sex: Male

DRUGS (3)
  1. FORSTEO 250UG/ML [Suspect]
     Active Substance: TERIPARATIDE
     Indication: HYPOCALCAEMIA
     Dosage: 0.16 UG/KG, DAILY
     Route: 058
  2. FORSTEO 250UG/ML [Suspect]
     Active Substance: TERIPARATIDE
     Dosage: 0.3 UG/KG, DAILY
     Route: 058
  3. TRIGLYCERIDES [Concomitant]
     Indication: BLOOD CALCIUM ABNORMAL
     Dosage: 35 MG/KG, DAILY

REACTIONS (9)
  - Gastrooesophageal reflux disease [Unknown]
  - Off label use [Unknown]
  - Product administered at inappropriate site [Unknown]
  - Hypocalcaemia [Unknown]
  - Blood alkaline phosphatase increased [Recovered/Resolved]
  - Oesophageal stenosis [Unknown]
  - Inappropriate schedule of product administration [Unknown]
  - Incorrect product administration duration [Unknown]
  - Wrong technique in product usage process [Unknown]
